FAERS Safety Report 21369145 (Version 2)
Quarter: 2022Q3

REPORT INFORMATION
  Report Type: Spontaneous
  Country: DE (occurrence: DE)
  Receive Date: 20220923
  Receipt Date: 20220928
  Transmission Date: 20221026
  Serious: Yes (Hospitalization)
  Sender: FDA-Public Use
  Company Number: None

PATIENT
  Age: 62 Year
  Sex: Male
  Weight: 67 kg

DRUGS (4)
  1. VELPHORO [Suspect]
     Active Substance: SUCROFERRIC OXYHYDROXIDE
     Indication: Product used for unknown indication
     Dosage: 500 MG,1 IN THE MORNING (1-0-0-0), CHEWABLE TABLETS
     Route: 048
  2. BUDESONIDE [Suspect]
     Active Substance: BUDESONIDE
     Indication: Product used for unknown indication
     Dosage: 3 MG, 1 IN THE MORNING, 1 AT NOON, 1 IN THE AFTERNOON (1-1-1-0), PROLONGED RELEASE CAPSULES
     Route: 048
  3. MESALAMINE [Concomitant]
     Active Substance: MESALAMINE
     Dosage: 500 MG, 1 IN THE MORNING, 1 IN THE EVENING (1-0-1-0), PROLONGED RELEASE TABLETS
     Route: 048
  4. ENOXAPARIN [Concomitant]
     Active Substance: ENOXAPARIN
     Dosage: 40 MG, 1 IN THE EVENING (0-0-1-0), PREFILLED SYRINGES
     Route: 058

REACTIONS (3)
  - Subileus [Unknown]
  - Abdominal pain [Unknown]
  - Vomiting [Unknown]
